FAERS Safety Report 23689403 (Version 1)
Quarter: 2024Q1

REPORT INFORMATION
  Report Type: Spontaneous
  Country: US (occurrence: US)
  Receive Date: 20240331
  Receipt Date: 20240331
  Transmission Date: 20240409
  Serious: No
  Sender: FDA-Public Use
  Company Number: US-TEVA-VS-3148319

PATIENT
  Age: 74 Year
  Sex: Female
  Weight: 65.32 kg

DRUGS (1)
  1. AJOVY [Suspect]
     Active Substance: FREMANEZUMAB-VFRM

REACTIONS (7)
  - Insomnia [Unknown]
  - Medication error [Unknown]
  - Constipation [Unknown]
  - Self-medication [Unknown]
  - Vestibular migraine [Unknown]
  - Medication error [Unknown]
  - Anxiety [Unknown]
